FAERS Safety Report 7761183-9 (Version None)
Quarter: 2011Q3

REPORT INFORMATION
  Report Type: 
  Country: None (occurrence: None)
  Receive Date: 20110915
  Receipt Date: 20110908
  Transmission Date: 20111222
  Serious: Yes (Other)
  Sender: FDA-Public Use
  Company Number: 2011SP042628

PATIENT
  Age: 41 Year
  Sex: Female

DRUGS (4)
  1. LEVETIRACETAM [Concomitant]
  2. TEMODAL [Suspect]
     Indication: ASTROCYTOMA
     Dosage: 420 MG, QD
     Dates: start: 20100101, end: 20100101
  3. TEMODAL [Suspect]
     Indication: ASTROCYTOMA
     Dosage: 420 MG, QD
     Dates: start: 20080101, end: 20080101
  4. PHENOBARBITAL TAB [Concomitant]

REACTIONS (5)
  - OLIGOHYDRAMNIOS [None]
  - URINARY TRACT INFECTION [None]
  - MATERNAL EXPOSURE DURING PREGNANCY [None]
  - THROMBOCYTOPENIA [None]
  - DRUG DOSE OMISSION [None]
